FAERS Safety Report 9131219 (Version 2)
Quarter: 2014Q1

REPORT INFORMATION
  Report Type: Spontaneous
  Country: US (occurrence: US)
  Receive Date: 20130301
  Receipt Date: 20140110
  Transmission Date: 20141002
  Serious: Yes (Life-Threatening)
  Sender: FDA-Public Use
  Company Number: US-SANOFI-AVENTIS-2013SA013453

PATIENT
  Age: 84 Year
  Sex: Male
  Weight: 91 kg

DRUGS (24)
  1. PLAVIX [Suspect]
     Indication: ACUTE CORONARY SYNDROME
     Route: 048
     Dates: start: 20130117, end: 20130117
  2. ASPIRIN [Suspect]
     Indication: ACUTE CORONARY SYNDROME
     Route: 048
     Dates: start: 20130116, end: 20130120
  3. ASPIRIN [Suspect]
     Indication: ACUTE CORONARY SYNDROME
     Route: 048
     Dates: start: 20130128, end: 20130207
  4. OTAMIXABAN [Suspect]
     Indication: ACUTE CORONARY SYNDROME
     Route: 042
     Dates: start: 20130117, end: 20130118
  5. HEPARIN [Concomitant]
     Dosage: DOSE:4000 UNIT(S)
     Route: 042
     Dates: start: 20130116, end: 20130117
  6. LOVENOX [Concomitant]
     Dates: start: 20130119, end: 20130119
  7. ZOCOR [Concomitant]
     Dates: start: 20130117, end: 20130120
  8. ALBUTEROL [Concomitant]
     Dates: start: 20130116, end: 20130123
  9. ALBUTEROL [Concomitant]
     Dates: start: 20130121, end: 20130121
  10. METOPROLOL [Concomitant]
     Dates: start: 20130117, end: 20130117
  11. VALSARTAN [Concomitant]
     Dates: start: 20130117, end: 20130118
  12. PROTONIX [Concomitant]
     Dates: start: 20130117, end: 20130120
  13. BUMEX [Concomitant]
     Dates: start: 20130120, end: 20130120
  14. BUMEX [Concomitant]
     Dates: start: 20130121, end: 20130121
  15. VANCOMYCIN [Concomitant]
     Dates: start: 20130121, end: 20130122
  16. CEFAZOLIN [Concomitant]
     Dates: start: 20130121, end: 20130123
  17. FACTOR VII (PROCONVERTIN) [Concomitant]
     Dates: start: 20130121, end: 20130121
  18. FAMOTIDINE [Concomitant]
     Dates: start: 20130121, end: 20130123
  19. INSULIN [Concomitant]
     Dates: start: 20130121, end: 20130122
  20. MIDAZOLAM [Concomitant]
     Dates: start: 20130121, end: 20130121
  21. MORPHINE [Concomitant]
     Dates: start: 20130121, end: 20130121
  22. LEVOPHED [Concomitant]
     Dosage: TOTAL DAILY DOSE: 1 MCG/KG/MIN
     Dates: start: 20130121, end: 20130122
  23. PROPOFOL [Concomitant]
     Dosage: TOTAL DAILY DOSE: 25 MCG/KG/MIN
     Dates: start: 20130121, end: 20130122
  24. VASOPRESSIN INJECTION [Concomitant]
     Dates: start: 20130121, end: 20130122

REACTIONS (1)
  - Traumatic haemothorax [Recovered/Resolved]
